FAERS Safety Report 24529268 (Version 1)
Quarter: 2024Q4

REPORT INFORMATION
  Report Type: Spontaneous
  Country: GB (occurrence: GB)
  Receive Date: 20241021
  Receipt Date: 20241021
  Transmission Date: 20250115
  Serious: Yes (Other)
  Sender: TEVA
  Company Number: GB-MHRA-TPP25982077C6515997YC1728917509680

PATIENT
  Age: 82 Year
  Sex: Female
  Weight: 50 kg

DRUGS (13)
  1. MEMANTINE [Suspect]
     Active Substance: MEMANTINE
     Indication: Ill-defined disorder
     Route: 065
     Dates: start: 20241003
  2. ISPAGHULA EXTRACT\PSYLLIUM [Concomitant]
     Active Substance: HERBALS\PLANTAGO OVATA SEED\PLANTAGO SEED
     Indication: Ill-defined disorder
     Dosage: USE ONE OR TWO SACHETS DAILY, TPP YC - PLEASE RECLASSIFY
     Dates: start: 20240716, end: 20240730
  3. RAMIPRIL [Concomitant]
     Active Substance: RAMIPRIL
     Indication: Ill-defined disorder
     Dosage: TPP YC - PLEASE RECLASSIFY
     Dates: start: 20240530
  4. DONEPEZIL HYDROCHLORIDE [Concomitant]
     Active Substance: DONEPEZIL HYDROCHLORIDE
     Indication: Ill-defined disorder
     Dosage: AT NIGHT - INFO ONLY, CURRENTLY...
     Dates: start: 20240624
  5. NITROFURANTOIN [Concomitant]
     Active Substance: NITROFURANTOIN
     Indication: Ill-defined disorder
     Dosage: TO TRE..., TPP YC - PLEASE RECLASSIFY
     Dates: start: 20240821, end: 20240824
  6. GLYCERIN [Concomitant]
     Active Substance: GLYCERIN
     Indication: Ill-defined disorder
     Dosage: TIME INTERVAL: AS NECESSARY: INSERT, TPP YC - PLEASE RECLASSIFY
     Dates: start: 20240716, end: 20240728
  7. SENNA [Concomitant]
     Active Substance: SENNA LEAF\SENNOSIDES\SENNOSIDES A AND B
     Indication: Ill-defined disorder
     Dosage: TAKE ONE TO TWO TABLETS AT NIGHT TO TREAT CONST..., TPP YC - PLEASE RECLASSIFY
     Dates: start: 20240716, end: 20240813
  8. LACTULOSE [Concomitant]
     Active Substance: LACTULOSE
     Indication: Ill-defined disorder
     Dosage: 5-10ML TWICE DAILY, TPP YC - PLEASE RECLASSIFY
     Dates: start: 20241007
  9. MINERAL OIL\PARAFFIN [Concomitant]
     Active Substance: MINERAL OIL\PARAFFIN
     Indication: Ill-defined disorder
     Dosage: USE FREQUENTLY AS A MOISTURISER, TPP YC - PLEASE RECLASSIFY
     Dates: start: 20240530
  10. BRINZOLAMIDE [Concomitant]
     Active Substance: BRINZOLAMIDE
     Indication: Ill-defined disorder
     Dosage: TO LEFT EYES, TPP YC - PLEASE RECLASSIFY
     Dates: start: 20240530
  11. SIMVASTATIN [Concomitant]
     Active Substance: SIMVASTATIN
     Indication: Ill-defined disorder
     Dosage: AT NIGHT, TPP YC - PLEASE RECLASSIFY
     Dates: start: 20240530
  12. LATANOPROST [Concomitant]
     Active Substance: LATANOPROST
     Indication: Ill-defined disorder
     Dosage: ONE DROP ONCE DAILY BOTH EYES AT NIGHT, TPP YC - PLEASE RECLASSIFY
     Route: 047
     Dates: start: 20240530
  13. CLOBETASONE BUTYRATE [Concomitant]
     Active Substance: CLOBETASONE BUTYRATE
     Indication: Ill-defined disorder
     Dosage: APPLY THINLY ONCE A DAY TO TREAT SKIN CONDITION, TPP YC - PLEASE RECLASSIFY
     Dates: start: 20240530

REACTIONS (1)
  - Agitation [Recovered/Resolved]
